FAERS Safety Report 13620312 (Version 1)
Quarter: 2017Q2

REPORT INFORMATION
  Report Type: Spontaneous
  Country: FR (occurrence: FR)
  Receive Date: 20170607
  Receipt Date: 20170607
  Transmission Date: 20170830
  Serious: Yes (Other)
  Sender: FDA-Public Use
  Company Number: FR-BAYER-2017-101564

PATIENT
  Age: 33 Year
  Sex: Female

DRUGS (1)
  1. MIRENA [Suspect]
     Active Substance: LEVONORGESTREL
     Dosage: 20 MCG/24HR, CONT
     Route: 015
     Dates: start: 20120515, end: 20121212

REACTIONS (4)
  - Tinnitus [Unknown]
  - Metrorrhagia [Unknown]
  - Headache [Unknown]
  - Abdominal pain [Unknown]

NARRATIVE: CASE EVENT DATE: 2012
